FAERS Safety Report 5872646-5 (Version None)
Quarter: 2008Q3

REPORT INFORMATION
  Report Type: 
  Country: None (occurrence: None)
  Receive Date: 20080905
  Receipt Date: 20080829
  Transmission Date: 20090109
  Serious: Yes (Hospitalization)
  Sender: FDA-Public Use
  Company Number: FR-WYE-H05799508

PATIENT
  Sex: Male
  Weight: 69 kg

DRUGS (1)
  1. TEMSIROLIMUS [Suspect]
     Indication: RENAL CELL CARCINOMA
     Dosage: 26 MG ONCE
     Route: 042
     Dates: start: 20080821

REACTIONS (1)
  - LUNG DISORDER [None]
